FAERS Safety Report 8817179 (Version 1)
Quarter: 2012Q4

REPORT INFORMATION
  Report Type: Spontaneous
  Country: US (occurrence: None)
  Receive Date: 20121003
  Receipt Date: 20121003
  Transmission Date: 20130627
  Serious: No
  Sender: FDA-Public Use
  Company Number: None

PATIENT
  Age: 60 Year
  Sex: Male
  Weight: 87.8 kg

DRUGS (5)
  1. PHENYTOIN [Suspect]
     Indication: SEIZURES
     Dates: start: 20120728, end: 20120804
  2. AMLODIPINE [Concomitant]
  3. PANTYPRAZOLO [Concomitant]
  4. CEFTRIARONE [Concomitant]
  5. HEPARIN [Concomitant]

REACTIONS (3)
  - Aspartate aminotransferase increased [None]
  - Alanine aminotransferase increased [None]
  - Blood alkaline phosphatase increased [None]
